FAERS Safety Report 15208341 (Version 2)
Quarter: 2018Q3

REPORT INFORMATION
  Report Type: Spontaneous
  Country: FR (occurrence: BE)
  Receive Date: 20180727
  Receipt Date: 20180904
  Transmission Date: 20181010
  Serious: Yes (Hospitalization, Other)
  Sender: FDA-Public Use
  Company Number: FR-BRISTOL-MYERS SQUIBB COMPANY-BMS-2018-030609

PATIENT
  Age: 58 Year
  Sex: Male
  Weight: 79 kg

DRUGS (3)
  1. IPILIMUMAB [Suspect]
     Active Substance: IPILIMUMAB
     Indication: MALIGNANT MELANOMA
     Dosage: UNK
     Route: 065
     Dates: start: 201709
  2. COVERAM [Concomitant]
     Active Substance: AMLODIPINE\PERINDOPRIL
     Indication: HYPERTENSION
     Dosage: 1 TAB, QD
     Route: 065
  3. NIVOLUMAB [Suspect]
     Active Substance: NIVOLUMAB
     Indication: MALIGNANT MELANOMA
     Dosage: UNK
     Route: 065
     Dates: start: 201709

REACTIONS (10)
  - Hypophysitis [Recovering/Resolving]
  - Hypothyroidism [Recovering/Resolving]
  - Asthenia [Unknown]
  - Cell death [Unknown]
  - Rash generalised [Unknown]
  - Cholestasis [Unknown]
  - Photophobia [Unknown]
  - Headache [Unknown]
  - Pyrexia [Recovering/Resolving]
  - Thrombocytopenia [Unknown]

NARRATIVE: CASE EVENT DATE: 201711
